FAERS Safety Report 21086770 (Version 1)
Quarter: 2022Q3

REPORT INFORMATION
  Report Type: Other
  Country: AT (occurrence: None)
  Receive Date: 20220715
  Receipt Date: 20220715
  Transmission Date: 20221027
  Serious: Yes (Death)
  Sender: FDA-Public Use
  Company Number: AT-ROCHE-3136400

PATIENT

DRUGS (3)
  1. EMICIZUMAB [Suspect]
     Active Substance: EMICIZUMAB
     Indication: Acquired haemophilia
     Route: 058
  2. EMICIZUMAB [Suspect]
     Active Substance: EMICIZUMAB
     Dosage: 2-4 WEEKS INTERVALS
     Route: 058
  3. RITUXIMAB [Suspect]
     Active Substance: RITUXIMAB
     Indication: Acquired haemophilia
     Route: 065

REACTIONS (2)
  - Infection [Fatal]
  - Off label use [Fatal]
